FAERS Safety Report 4682030-8 (Version None)
Quarter: 2005Q2

REPORT INFORMATION
  Report Type: 
  Country: None (occurrence: None)
  Receive Date: 20050606
  Receipt Date: 20050525
  Transmission Date: 20051028
  Serious: Yes (Other)
  Sender: FDA-Public Use
  Company Number: US-JNJFOC-20050305606

PATIENT
  Sex: Female
  Weight: 83.01 kg

DRUGS (29)
  1. REMICADE [Suspect]
     Route: 042
  2. REMICADE [Suspect]
     Route: 042
  3. REMICADE [Suspect]
     Route: 042
  4. REMICADE [Suspect]
     Route: 042
  5. REMICADE [Suspect]
     Route: 042
  6. REMICADE [Suspect]
     Indication: RHEUMATOID ARTHRITIS
     Dosage: ^FOR AT LEAST 4 YEARS, 3 VIALS PER TREATMENT^
     Route: 042
  7. SYNTHROID [Concomitant]
  8. ACTONEL [Concomitant]
  9. PLAVIX [Concomitant]
  10. BLOOD PRESSURE MEDICATIONS [Concomitant]
  11. LORAZEPAM [Concomitant]
  12. ACIPHEX [Concomitant]
  13. AVALIDE [Concomitant]
  14. AVALIDE [Concomitant]
  15. VERELAN PM [Concomitant]
  16. EFFEXOR XR [Concomitant]
  17. PLAVIX [Concomitant]
  18. ZOCOR [Concomitant]
  19. FOLIC ACID [Concomitant]
  20. MULTIVITAMIN [Concomitant]
  21. MULTIVITAMIN [Concomitant]
  22. MULTIVITAMIN [Concomitant]
  23. MULTIVITAMIN [Concomitant]
  24. MULTIVITAMIN [Concomitant]
  25. MULTIVITAMIN [Concomitant]
  26. MULTIVITAMIN [Concomitant]
  27. MULTIVITAMIN [Concomitant]
  28. B 12 [Concomitant]
  29. WELLBUTRIN SR [Concomitant]

REACTIONS (10)
  - ACNE [None]
  - CEREBROVASCULAR ACCIDENT [None]
  - CHEST PAIN [None]
  - COLITIS [None]
  - CORONARY ARTERY DISEASE [None]
  - CORONARY ARTERY OCCLUSION [None]
  - DEPRESSED MOOD [None]
  - ECZEMA [None]
  - HEADACHE [None]
  - RASH [None]
